FAERS Safety Report 11385910 (Version 1)
Quarter: 2015Q3

REPORT INFORMATION
  Report Type: Spontaneous
  Country: GB (occurrence: GB)
  Receive Date: 20150817
  Receipt Date: 20150817
  Transmission Date: 20151125
  Serious: Yes (Other)
  Sender: FDA-Public Use
  Company Number: GB-AUROBINDO-AUR-APL-2015-07124

PATIENT
  Age: 73 Year
  Sex: Male
  Weight: 102 kg

DRUGS (7)
  1. NAPROXEN 500MG [Suspect]
     Active Substance: NAPROXEN
     Indication: ARTHRITIS
     Dosage: 500 MG, TWO TIMES A DAY
     Route: 065
     Dates: start: 2010
  2. SIMVASTATIN. [Concomitant]
     Active Substance: SIMVASTATIN
     Indication: PRODUCT USED FOR UNKNOWN INDICATION
     Route: 065
  3. ASPIRIN. [Concomitant]
     Active Substance: ASPIRIN
     Indication: PRODUCT USED FOR UNKNOWN INDICATION
     Route: 065
  4. COD LIVER OIL [Concomitant]
     Active Substance: COD LIVER OIL
     Indication: PRODUCT USED FOR UNKNOWN INDICATION
     Route: 065
  5. OMEPRAZOLE. [Concomitant]
     Active Substance: OMEPRAZOLE
     Indication: PRODUCT USED FOR UNKNOWN INDICATION
     Route: 065
  6. AMLODIPINE [Concomitant]
     Active Substance: AMLODIPINE BESYLATE
     Indication: PRODUCT USED FOR UNKNOWN INDICATION
     Route: 065
  7. PREGABALIN. [Suspect]
     Active Substance: PREGABALIN
     Indication: MYELOPATHY
     Dosage: 75 MG, 3 TIMES A DAY
     Route: 048
     Dates: start: 20150708, end: 20150725

REACTIONS (5)
  - Joint swelling [Recovered/Resolved with Sequelae]
  - Drug ineffective [Unknown]
  - Back pain [Not Recovered/Not Resolved]
  - Arthritis [Not Recovered/Not Resolved]
  - Inhibitory drug interaction [Not Recovered/Not Resolved]

NARRATIVE: CASE EVENT DATE: 20150708
